FAERS Safety Report 7917076-7 (Version None)
Quarter: 2011Q4

REPORT INFORMATION
  Report Type: 
  Country: None (occurrence: None)
  Receive Date: 20111114
  Receipt Date: 20111101
  Transmission Date: 20120403
  Serious: Yes (Hospitalization)
  Sender: FDA-Public Use
  Company Number: ABR_00278_2011

PATIENT
  Sex: Male

DRUGS (2)
  1. NITROGLYCERIN [Suspect]
     Indication: ANGINA PECTORIS
     Dosage: (0.4 MG MILLIGRAM(S) 1/1 AS NECESSARY)
     Route: 060
  2. VALSARTAN [Concomitant]

REACTIONS (1)
  - SYNCOPE [None]
